FAERS Safety Report 10267357 (Version 1)
Quarter: 2014Q2

REPORT INFORMATION
  Report Type: Spontaneous
  Country: US (occurrence: None)
  Receive Date: 20140625
  Receipt Date: 20140625
  Transmission Date: 20141212
  Serious: Yes (Hospitalization)
  Sender: FDA-Public Use
  Company Number: UNT-2014-001116

PATIENT
  Age: 30 Year
  Sex: Female
  Weight: 101.1 kg

DRUGS (2)
  1. REMODULIN [Suspect]
     Indication: PULMONARY ARTERIAL HYPERTENSION
     Route: 042
     Dates: start: 20110819
  2. ADCIRCA (TADALAFIL) [Concomitant]

REACTIONS (2)
  - Vomiting [None]
  - Blood count abnormal [None]
